FAERS Safety Report 4667809-0 (Version None)
Quarter: 2005Q2

REPORT INFORMATION
  Report Type: 
  Country: None (occurrence: None)
  Receive Date: 20050520
  Receipt Date: 20050520
  Transmission Date: 20051028
  Serious: Yes (Life-Threatening)
  Sender: FDA-Public Use
  Company Number: None

PATIENT
  Age: 6 Month
  Sex: Male

DRUGS (2)
  1. LINEZOLID  2MG / ML  IV [Suspect]
     Indication: ENTEROCOCCAL INFECTION
     Dosage: 60 MG IV Q 8 HR
     Route: 042
     Dates: start: 20050406, end: 20050502
  2. LINEZOLID  2MG / ML  IV [Suspect]
     Indication: PYREXIA
     Dosage: 60 MG IV Q 8 HR
     Route: 042
     Dates: start: 20050406, end: 20050502

REACTIONS (2)
  - CARDIAC ARREST [None]
  - LACTIC ACIDOSIS [None]
